FAERS Safety Report 17220769 (Version 3)
Quarter: 2020Q1

REPORT INFORMATION
  Report Type: Report from Study
  Country: DK (occurrence: DK)
  Receive Date: 20191231
  Receipt Date: 20200109
  Transmission Date: 20200409
  Serious: Yes (Hospitalization)
  Sender: FDA-Public Use
  Company Number: DK-CELGENEUS-DNK-20191209946

PATIENT
  Age: 53 Year
  Sex: Female
  Weight: 60.9 kg

DRUGS (23)
  1. TEMESTA [Concomitant]
     Route: 048
     Dates: start: 20191125
  2. PANODIL [Concomitant]
     Active Substance: ACETAMINOPHEN
     Indication: PAIN
     Route: 048
     Dates: start: 20191120
  3. IMIGRAN [Concomitant]
     Active Substance: SUMATRIPTAN SUCCINATE
     Indication: MIGRAINE
     Route: 048
     Dates: start: 20191220
  4. GEMCITABINE. [Suspect]
     Active Substance: GEMCITABINE
     Indication: PANCREATIC CARCINOMA
     Route: 065
     Dates: end: 20191219
  5. MOVENTIG [Concomitant]
     Active Substance: NALOXEGOL OXALATE
     Indication: CONSTIPATION
     Route: 048
     Dates: start: 20191122
  6. LAXOBERAL [Concomitant]
     Active Substance: SODIUM PICOSULFATE
     Indication: CONSTIPATION
     Route: 048
     Dates: start: 20191121
  7. TEMESTA [Concomitant]
     Indication: PROPHYLAXIS
     Route: 048
     Dates: start: 20191121
  8. MOVICOL [Concomitant]
     Active Substance: POLYETHYLENE GLYCOL 3350\POTASSIUM CHLORIDE\SODIUM BICARBONATE\SODIUM CHLORIDE
     Indication: CONSTIPATION
     Dosage: 1 SACHET
     Route: 048
     Dates: start: 20191127
  9. PREGABALIN. [Concomitant]
     Active Substance: PREGABALIN
     Indication: NEURALGIA
     Route: 048
     Dates: start: 20191108
  10. ACTAVIS [Concomitant]
     Indication: PAIN
     Route: 048
     Dates: start: 20191129
  11. TOCILIZUMAB. [Suspect]
     Active Substance: TOCILIZUMAB
     Indication: PANCREATIC CARCINOMA
     Route: 065
     Dates: end: 20191219
  12. ACTIVELLE [Concomitant]
     Active Substance: ESTRADIOL\NORETHINDRONE ACETATE
     Indication: HORMONE REPLACEMENT THERAPY
     Dosage: 0.5 + 1 MG
     Route: 048
     Dates: start: 20191111
  13. PREDNISOLONE. [Concomitant]
     Active Substance: PREDNISOLONE
     Indication: HORMONE THERAPY
     Route: 048
     Dates: start: 20191122
  14. METADON [Concomitant]
     Active Substance: METHADONE HYDROCHLORIDE
     Indication: PAIN
     Route: 048
     Dates: start: 20191121
  15. MOTILIUM [Concomitant]
     Active Substance: DOMPERIDONE
     Indication: NAUSEA
     Route: 048
     Dates: start: 20191125
  16. ABRAXANE [Suspect]
     Active Substance: PACLITAXEL
     Indication: PANCREATIC CARCINOMA
     Route: 041
     Dates: end: 20191219
  17. PREGABALIN. [Concomitant]
     Active Substance: PREGABALIN
     Route: 048
     Dates: start: 20191216
  18. PANTOLOC [Concomitant]
     Active Substance: PANTOPRAZOLE SODIUM
     Indication: PROPHYLAXIS AGAINST GASTROINTESTINAL ULCER
     Route: 048
     Dates: start: 20191111
  19. MOVICOL [Concomitant]
     Active Substance: POLYETHYLENE GLYCOL 3350\POTASSIUM CHLORIDE\SODIUM BICARBONATE\SODIUM CHLORIDE
     Dosage: 1 SACHET
     Route: 048
     Dates: start: 20191114
  20. MAGNESIA [Concomitant]
     Active Substance: MAGNESIUM HYDROXIDE
     Indication: CONSTIPATION
     Route: 048
     Dates: start: 20191008
  21. RELTEBON DEPOT [Concomitant]
     Active Substance: OXYCODONE HYDROCHLORIDE
     Indication: PAIN
     Route: 048
     Dates: start: 20191115
  22. OXYNORM [Concomitant]
     Active Substance: OXYCODONE HYDROCHLORIDE
     Indication: PAIN
     Route: 048
     Dates: start: 20191129
  23. MATRIFEN [Concomitant]
     Active Substance: FENTANYL
     Indication: PAIN
     Dosage: 100 MICROGRAM/HOUR
     Route: 062
     Dates: start: 20191218

REACTIONS (1)
  - Gastrointestinal haemorrhage [Recovered/Resolved]

NARRATIVE: CASE EVENT DATE: 20191226
